FAERS Safety Report 18156397 (Version 14)
Quarter: 2024Q2

REPORT INFORMATION
  Report Type: Spontaneous
  Country: US (occurrence: US)
  Receive Date: 20200817
  Receipt Date: 20240424
  Transmission Date: 20240715
  Serious: No
  Sender: FDA-Public Use
  Company Number: US-PFIZER INC-2020313312

PATIENT
  Age: 78 Year
  Sex: Male
  Weight: 99.773 kg

DRUGS (4)
  1. BOSULIF [Suspect]
     Active Substance: BOSUTINIB MONOHYDRATE
     Indication: Chronic myeloid leukaemia
     Dosage: TAKE 1 TAB DAILY MONDAY-FRIDAY
     Route: 048
  2. BOSULIF [Suspect]
     Active Substance: BOSUTINIB MONOHYDRATE
     Dosage: 3 DAYS PER WEEK ON MONDAY, WEDNESDAY AND FRIDAY
     Route: 048
  3. BOSULIF [Suspect]
     Active Substance: BOSUTINIB MONOHYDRATE
     Dosage: [100 MG, 3 DAYS A WEEK (MONDAY, WEDNESDAY, FRIDAY)]
     Dates: start: 20200330
  4. BOSULIF [Suspect]
     Active Substance: BOSUTINIB MONOHYDRATE
     Dosage: 100 MG (1 TABLET MONDAY, WEDNESDAY, FRIDAY)
     Dates: start: 20221229

REACTIONS (3)
  - Hypoacusis [Unknown]
  - Off label use [Unknown]
  - Intentional dose omission [Unknown]
